FAERS Safety Report 15203037 (Version 1)
Quarter: 2018Q3

REPORT INFORMATION
  Report Type: Report from Study
  Country: FR (occurrence: FR)
  Receive Date: 20180726
  Receipt Date: 20180726
  Transmission Date: 20181010
  Serious: Yes (Other)
  Sender: FDA-Public Use
  Company Number: FR-JNJFOC-20180729218

PATIENT
  Sex: Female

DRUGS (2)
  1. REMICADE [Suspect]
     Active Substance: INFLIXIMAB
     Indication: PROCTITIS HAEMORRHAGIC
     Route: 042
  2. IMUREL [Suspect]
     Active Substance: AZATHIOPRINE SODIUM
     Indication: PRODUCT USED FOR UNKNOWN INDICATION
     Route: 065

REACTIONS (9)
  - Irritability [Unknown]
  - Insomnia [Unknown]
  - Fat redistribution [Unknown]
  - Arthralgia [Unknown]
  - Swelling face [Unknown]
  - Alopecia [Unknown]
  - Cytomegalovirus infection [Unknown]
  - Skin disorder [Unknown]
  - Rash [Unknown]
